FAERS Safety Report 9843016 (Version 1)
Quarter: 2013Q4

REPORT INFORMATION
  Report Type: Spontaneous
  Country: US (occurrence: None)
  Receive Date: 20131223
  Receipt Date: 20131223
  Transmission Date: 20140711
  Serious: No
  Sender: FDA-Public Use
  Company Number: 219008LEO

PATIENT
  Sex: Male

DRUGS (1)
  1. PICATO (0.015 %, GEL) [Suspect]
     Indication: ACTINIC KERATOSIS
     Route: 061
     Dates: start: 20120915, end: 20120916

REACTIONS (4)
  - Off label use [None]
  - Off label use [None]
  - Drug ineffective for unapproved indication [None]
  - Incorrect drug administration duration [None]
